FAERS Safety Report 8208562-3 (Version None)
Quarter: 2012Q1

REPORT INFORMATION
  Report Type: 
  Country: None (occurrence: None)
  Receive Date: 20120314
  Receipt Date: 20120229
  Transmission Date: 20120608
  Serious: Yes (Hospitalization)
  Sender: FDA-Public Use
  Company Number: US-GLAXOSMITHKLINE-A0968231A

PATIENT
  Age: 39 Year
  Sex: Female
  Weight: 88.8 kg

DRUGS (11)
  1. PACLITAXEL [Suspect]
     Indication: BREAST CANCER
     Dosage: 80MGM2 CYCLIC
     Route: 042
     Dates: start: 20110526, end: 20110901
  2. CYCLOPHOSPHAMIDE [Suspect]
     Indication: BREAST CANCER
     Dosage: 600MGM2 CYCLIC
     Route: 042
     Dates: start: 20110224, end: 20110505
  3. RADIATION [Suspect]
     Indication: BREAST CANCER
     Dates: start: 20111116, end: 20111221
  4. SILVADENE [Concomitant]
  5. AQUAPHOR [Concomitant]
  6. TAMOXIFEN CITRATE [Concomitant]
     Indication: BREAST CANCER
     Dosage: 20MG PER DAY
     Route: 048
     Dates: start: 20111108
  7. LISINOPRIL [Concomitant]
     Indication: HYPERTENSION
     Dosage: 10MG PER DAY
     Route: 048
     Dates: start: 20110616
  8. NORVASC [Concomitant]
     Indication: HYPERTENSION
     Dosage: 5MG PER DAY
     Route: 048
     Dates: start: 20110621
  9. VOTRIENT [Suspect]
     Indication: BREAST CANCER
     Dosage: 400MG PER DAY
     Route: 048
     Dates: start: 20111109, end: 20120227
  10. DOXORUBICIN HCL [Suspect]
     Indication: BREAST CANCER
     Dosage: 60MGM2 CYCLIC
     Route: 042
     Dates: start: 20110224, end: 20110505
  11. SANTYL [Concomitant]

REACTIONS (3)
  - INFECTION [None]
  - DERMATITIS [None]
  - RADIATION INJURY [None]
